FAERS Safety Report 16556695 (Version 1)
Quarter: 2019Q3

REPORT INFORMATION
  Report Type: Spontaneous
  Country: AU (occurrence: AU)
  Receive Date: 20190711
  Receipt Date: 20190711
  Transmission Date: 20191004
  Serious: Yes (Other)
  Sender: FDA-Public Use
  Company Number: PHHY2019AU158345

PATIENT
  Age: 28 Year
  Sex: Male

DRUGS (1)
  1. GILENYA [Suspect]
     Active Substance: FINGOLIMOD HYDROCHLORIDE
     Indication: PRODUCT USED FOR UNKNOWN INDICATION
     Route: 065

REACTIONS (21)
  - Vertigo [Unknown]
  - Chikungunya virus infection [Unknown]
  - Dizziness [Unknown]
  - Gamma-glutamyltransferase increased [Unknown]
  - Erectile dysfunction [Unknown]
  - Aspartate aminotransferase increased [Unknown]
  - Lymphopenia [Unknown]
  - Feeling abnormal [Unknown]
  - Dengue fever [Unknown]
  - Viral infection [Unknown]
  - White blood cell count decreased [Unknown]
  - Acne [Unknown]
  - Muscle twitching [Unknown]
  - Bradycardia [Unknown]
  - Nasopharyngitis [Unknown]
  - Ocular icterus [Unknown]
  - Nausea [Unknown]
  - Fatigue [Unknown]
  - Abdominal pain upper [Unknown]
  - Alanine aminotransferase increased [Unknown]
  - Migraine [Unknown]
